FAERS Safety Report 8334892-0 (Version None)
Quarter: 2012Q2

REPORT INFORMATION
  Report Type: 
  Country: None (occurrence: None)
  Receive Date: 20120503
  Receipt Date: 20120426
  Transmission Date: 20120825
  Serious: Yes (Hospitalization)
  Sender: FDA-Public Use
  Company Number: IT-BRISTOL-MYERS SQUIBB COMPANY-16535619

PATIENT
  Age: 91 Year
  Sex: Female

DRUGS (7)
  1. ALLOPURINOL [Concomitant]
     Dosage: 1 DOSE
     Route: 048
  2. LASIX [Suspect]
     Indication: HYPERTENSION
     Dosage: FORM: 500MG. ALSO 25MG FROM 1JAN05-6APR12 INTERRUPTED ON 6APR12
     Route: 048
     Dates: start: 20050101
  3. CITALOPRAM HYDROBROMIDE [Concomitant]
     Dosage: 1 DOSE
     Route: 048
  4. OMEPRAZOLE [Concomitant]
     Route: 048
     Dates: start: 20120404
  5. METOCLOPRAMIDE HYDROCHLORIDE [Concomitant]
     Dosage: 2 DOSES
     Route: 048
     Dates: start: 20120404
  6. COUMADIN [Suspect]
     Indication: ATRIAL FIBRILLATION
     Dosage: INTERRUPTED ON 6APR12
     Route: 048
     Dates: start: 20100101
  7. ENALAPRIL MALEATE [Suspect]
     Indication: HYPERTENSION
     Dosage: INTERRUPTED ON 6APR12
     Route: 048
     Dates: start: 20110101

REACTIONS (3)
  - RENAL FAILURE ACUTE [None]
  - HYPERKALAEMIA [None]
  - HYPOCOAGULABLE STATE [None]
